FAERS Safety Report 15806166 (Version 1)
Quarter: 2019Q1

REPORT INFORMATION
  Report Type: Spontaneous
  Country: IN (occurrence: IN)
  Receive Date: 20190110
  Receipt Date: 20190110
  Transmission Date: 20190417
  Serious: Yes (Other)
  Sender: FDA-Public Use
  Company Number: IN-MACLEODS PHARMACEUTICALS US LTD-MAC2018019483

PATIENT

DRUGS (2)
  1. TRAMADOL HYDROCHLORIDE TABLET [Suspect]
     Active Substance: TRAMADOL HYDROCHLORIDE
     Indication: TOBACCO WITHDRAWAL SYMPTOMS
  2. TRAMADOL HYDROCHLORIDE TABLET [Suspect]
     Active Substance: TRAMADOL HYDROCHLORIDE
     Indication: DRUG WITHDRAWAL SYNDROME
     Dosage: 300 MILLIGRAM (DEVIDED DOSE)
     Route: 048

REACTIONS (1)
  - Pica [Recovered/Resolved]
